FAERS Safety Report 13457084 (Version 2)
Quarter: 2017Q2

REPORT INFORMATION
  Report Type: Spontaneous
  Country: US (occurrence: US)
  Receive Date: 20170419
  Receipt Date: 20170425
  Transmission Date: 20170830
  Serious: Yes (Other)
  Sender: FDA-Public Use
  Company Number: US-PFIZER INC-2017170447

PATIENT
  Age: 54 Year
  Sex: Female
  Weight: 84.35 kg

DRUGS (1)
  1. EPIPEN [Suspect]
     Active Substance: EPINEPHRINE
     Indication: HYPERSENSITIVITY
     Dosage: 0.3 MG, PRN
     Route: 030
     Dates: start: 20170101, end: 20170101

REACTIONS (6)
  - Device failure [Recovered/Resolved]
  - Injection site haemorrhage [Unknown]
  - Back disorder [Recovered/Resolved]
  - Product quality issue [Unknown]
  - Accidental exposure to product [Recovered/Resolved]
  - Device use issue [Unknown]

NARRATIVE: CASE EVENT DATE: 20170101
